FAERS Safety Report 8401297-3 (Version None)
Quarter: 2012Q2

REPORT INFORMATION
  Report Type: 
  Country: None (occurrence: None)
  Receive Date: 20120530
  Receipt Date: 20120530
  Transmission Date: 20120825
  Serious: Yes (Other)
  Sender: FDA-Public Use
  Company Number: None

PATIENT
  Age: 60 Year
  Sex: Female
  Weight: 77.1115 kg

DRUGS (1)
  1. FLECTOR [Suspect]
     Indication: BACK PAIN
     Dosage: 12HRS ON/12HRS OFF ONCE A DAY AS NEEDED
     Dates: start: 20101102, end: 20110729

REACTIONS (9)
  - RASH [None]
  - CONFUSIONAL STATE [None]
  - DIZZINESS [None]
  - DYSPNOEA [None]
  - TUNNEL VISION [None]
  - VISION BLURRED [None]
  - MIGRAINE [None]
  - SPEECH DISORDER [None]
  - PRURITUS [None]
